FAERS Safety Report 7381097-6 (Version None)
Quarter: 2011Q1

REPORT INFORMATION
  Report Type: 
  Country: None (occurrence: None)
  Receive Date: 20110329
  Receipt Date: 20100823
  Transmission Date: 20110831
  Serious: No
  Sender: FDA-Public Use
  Company Number: US-AMGEN-KDL433048

PATIENT
  Sex: Female

DRUGS (7)
  1. SENSIPAR [Suspect]
     Indication: PRODUCT USED FOR UNKNOWN INDICATION
     Dosage: 30 MG, QD
     Route: 048
     Dates: start: 20090501
  2. ESOMEPRAZOLE MAGNESIUM [Concomitant]
     Dosage: UNK UNK, UNK
  3. FENOFIBRATE [Concomitant]
     Dosage: UNK UNK, UNK
  4. FOLIC ACID [Concomitant]
     Dosage: UNK UNK, UNK
  5. RENAGEL [Concomitant]
     Dosage: UNK UNK, UNK
  6. LORATADINE [Concomitant]
     Dosage: UNK UNK, UNK
  7. LEVOTHYROXINE SODIUM [Concomitant]
     Dosage: UNK UNK, UNK

REACTIONS (1)
  - BLOOD CALCIUM DECREASED [None]
